FAERS Safety Report 24747899 (Version 1)
Quarter: 2024Q4

REPORT INFORMATION
  Report Type: Spontaneous
  Country: JP (occurrence: JP)
  Receive Date: 20241218
  Receipt Date: 20241218
  Transmission Date: 20250114
  Serious: Yes (Death)
  Sender: AMGEN
  Company Number: JP-AMGEN-JPNSP2024247834

PATIENT
  Sex: Male

DRUGS (2)
  1. BLINCYTO [Suspect]
     Active Substance: BLINATUMOMAB
     Indication: B precursor type acute leukaemia
     Dosage: 9 MICROGRAM, AS PER THE PACKAGE INSERT DRIP INFUSION
     Route: 040
     Dates: start: 20241113, end: 202411
  2. BLINCYTO [Suspect]
     Active Substance: BLINATUMOMAB
     Indication: Philadelphia chromosome negative
     Dosage: 28 MICROGRAM, AS PER THE PACKAGE INSERT DRIP INFUSION
     Route: 040
     Dates: start: 202411, end: 20241130

REACTIONS (1)
  - B precursor type acute leukaemia [Fatal]

NARRATIVE: CASE EVENT DATE: 20241130
